FAERS Safety Report 8854174 (Version 1)
Quarter: 2012Q4

REPORT INFORMATION
  Report Type: 
  Country: FR (occurrence: FR)
  Receive Date: 20121022
  Receipt Date: 20121022
  Transmission Date: 20130627
  Serious: Yes (Hospitalization, Other)
  Sender: FDA-Public Use
  Company Number: FR-BRISTOL-MYERS SQUIBB COMPANY-17034034

PATIENT
  Age: 85 Year
  Sex: Female

DRUGS (14)
  1. COUMADIN TABS 2 MG [Suspect]
     Dosage: scored tablet
     Route: 048
     Dates: start: 2011, end: 20120909
  2. DIGOXIN [Suspect]
  3. CORDARONE [Concomitant]
     Dosage: tab
  4. HEMIGOXINE NATIVELLE [Concomitant]
     Dosage: tab
  5. PROPRANOLOL [Concomitant]
     Dosage: 1/2 tab the morning and 1/2 in the evening
  6. FLUDEX [Concomitant]
     Dosage: Fludex ER Tab
  7. DIFFU-K [Concomitant]
  8. EBIXA [Concomitant]
     Dosage: tab
  9. LEVOTHYROX [Concomitant]
     Dosage: 1 df = 1 tab of 50micro g + 1/2 tab of 25micro g in the morning
  10. EDUCTYL [Concomitant]
     Dosage: suppository for adult
  11. NORMACOL [Concomitant]
     Dosage: enema
  12. IMPORTAL [Concomitant]
     Dosage: 2 sachets in the morning
  13. SMECTA [Concomitant]
     Indication: DIARRHOEA
  14. GAVISCON [Concomitant]
     Dosage: until 3 daily max

REACTIONS (4)
  - Mesenteric haematoma [Recovering/Resolving]
  - Anaemia [Recovering/Resolving]
  - Overdose [Unknown]
  - Renal failure acute [Unknown]
